FAERS Safety Report 5254688-6 (Version None)
Quarter: 2007Q1

REPORT INFORMATION
  Report Type: 
  Country: None (occurrence: None)
  Receive Date: 20070227
  Receipt Date: 20070215
  Transmission Date: 20070707
  Serious: Yes (Hospitalization, Other)
  Sender: FDA-Public Use
  Company Number: 2007SP003051

PATIENT
  Age: 57 Year
  Sex: Female

DRUGS (15)
  1. PEG-INTRON [Suspect]
     Indication: HEPATITIS C
     Dosage: SEE IMAGE
     Route: 058
     Dates: start: 20070112, end: 20070119
  2. PEG-INTRON [Suspect]
     Indication: HEPATITIS C
     Dosage: SEE IMAGE
     Route: 058
     Dates: start: 20070126, end: 20070202
  3. RIBAVIRIN [Suspect]
     Indication: HEPATITIS C
     Dosage: 200 MG; BID; PO
     Route: 048
     Dates: start: 20070112, end: 20070209
  4. WELLBUTRIN [Concomitant]
  5. FOSAMAX [Concomitant]
  6. METOPROLOL SUCCINATE [Concomitant]
  7. TYLENOL [Concomitant]
  8. MULTI-VITAMIN [Concomitant]
  9. CALCIUM CARBONATE [Concomitant]
  10. ZOFRAN [Concomitant]
  11. LASIX [Concomitant]
  12. SPIRONOLACTONE [Concomitant]
  13. ZOCOR [Concomitant]
  14. OMEPRAZOLE [Concomitant]
  15. PREDNISONE [Concomitant]

REACTIONS (13)
  - ABSCESS SWEAT GLAND [None]
  - ANXIETY [None]
  - DEHYDRATION [None]
  - DELIRIUM [None]
  - DRUG TOXICITY [None]
  - FALL [None]
  - FEAR [None]
  - FOOD AVERSION [None]
  - NAUSEA [None]
  - PAIN IN EXTREMITY [None]
  - PSYCHOTIC DISORDER [None]
  - STAPHYLOCOCCAL ABSCESS [None]
  - SYNCOPE [None]
